FAERS Safety Report 16537694 (Version 1)
Quarter: 2019Q3

REPORT INFORMATION
  Report Type: Spontaneous
  Country: US (occurrence: US)
  Receive Date: 20190708
  Receipt Date: 20190708
  Transmission Date: 20191004
  Serious: No
  Sender: FDA-Public Use
  Company Number: US-LUPIN PHARMACEUTICALS INC.-2019-02416

PATIENT
  Sex: Female

DRUGS (2)
  1. SOLOSEC [Suspect]
     Active Substance: SECNIDAZOLE
     Indication: BACTERIAL VAGINOSIS
     Dosage: UNK,2 MONTHS AGO SPRINKLED ON YOGURT
     Route: 065
  2. SOLOSEC [Suspect]
     Active Substance: SECNIDAZOLE
     Dosage: UNK, MIXED WITH APPLESAUCE
     Route: 065
     Dates: start: 20190402

REACTIONS (2)
  - Headache [Not Recovered/Not Resolved]
  - Nausea [Not Recovered/Not Resolved]

NARRATIVE: CASE EVENT DATE: 20190403
